FAERS Safety Report 7200180-9 (Version None)
Quarter: 2010Q4

REPORT INFORMATION
  Report Type: 
  Country: None (occurrence: None)
  Receive Date: 20101228
  Receipt Date: 20101221
  Transmission Date: 20110411
  Serious: Yes (Death)
  Sender: FDA-Public Use
  Company Number: FR-CELGENEUS-056-50794-10122925

PATIENT
  Age: 72 Year

DRUGS (1)
  1. VIDAZA [Suspect]
     Route: 065
     Dates: start: 20090601, end: 20100801

REACTIONS (1)
  - DEATH [None]
